FAERS Safety Report 13677256 (Version 1)
Quarter: 2017Q2

REPORT INFORMATION
  Report Type: Spontaneous
  Country: CO (occurrence: CO)
  Receive Date: 20170622
  Receipt Date: 20170622
  Transmission Date: 20170830
  Serious: Yes (Hospitalization, Other)
  Sender: FDA-Public Use
  Company Number: CO-LUPIN PHARMACEUTICALS INC.-2017-02038

PATIENT
  Age: 41 Year
  Sex: Female

DRUGS (1)
  1. DROSPIRENONE AND ETHINYL ESTRADIOL TABLETS 3 MG/0.02 MG [Suspect]
     Active Substance: DROSPIRENONE\ETHINYL ESTRADIOL
     Indication: CONTRACEPTION
     Dosage: 3 MG/0.02 MG, UNK
     Route: 065
     Dates: start: 201308, end: 201407

REACTIONS (8)
  - Blood pressure decreased [None]
  - Neck mass [None]
  - International normalised ratio increased [None]
  - Lymphadenopathy [None]
  - Pulmonary embolism [Recovered/Resolved]
  - Leukocytosis [None]
  - Anaemia [None]
  - Respiratory alkalosis [None]
